FAERS Safety Report 21017837 (Version 1)
Quarter: 2022Q3

REPORT INFORMATION
  Report Type: Report from Study
  Country: PK (occurrence: PK)
  Receive Date: 20220628
  Receipt Date: 20220628
  Transmission Date: 20221027
  Serious: Yes (Death)
  Sender: FDA-Public Use
  Company Number: PK-NOVARTISPH-NVSC2022PK147605

PATIENT
  Age: 58 Year
  Sex: Male

DRUGS (1)
  1. TASIGNA [Suspect]
     Active Substance: NILOTINIB
     Indication: Chronic myeloid leukaemia
     Dosage: 800 MG (2+2XBD)
     Route: 048
     Dates: start: 20130402

REACTIONS (2)
  - Death [Fatal]
  - Incorrect dose administered [Unknown]

NARRATIVE: CASE EVENT DATE: 20130402
